FAERS Safety Report 8514841-2 (Version None)
Quarter: 2012Q3

REPORT INFORMATION
  Report Type: 
  Country: None (occurrence: None)
  Receive Date: 20120711
  Receipt Date: 20120711
  Transmission Date: 20120928
  Serious: Yes (Other)
  Sender: FDA-Public Use
  Company Number: None

PATIENT
  Age: 30 Year
  Sex: Female
  Weight: 52.6173 kg

DRUGS (2)
  1. CETIRIZINE HCL [Suspect]
     Indication: MULTIPLE ALLERGIES
     Dosage: 1 TABLET 24 HOURS BUCCAL
     Route: 002
     Dates: start: 20120707, end: 20120707
  2. NORGESTIMATE AND ETHINYL ESTRADIOL [Concomitant]

REACTIONS (5)
  - HYPOTENSION [None]
  - VOMITING [None]
  - NAUSEA [None]
  - SYNCOPE [None]
  - PHYSICAL PRODUCT LABEL ISSUE [None]
